FAERS Safety Report 12138353 (Version 4)
Quarter: 2017Q1

REPORT INFORMATION
  Report Type: Report from Study
  Country: CO (occurrence: CO)
  Receive Date: 20160302
  Receipt Date: 20170126
  Transmission Date: 20170428
  Serious: Yes (Hospitalization)
  Sender: FDA-Public Use
  Company Number: PHHY2015CO109651

PATIENT
  Sex: Male
  Weight: 64 kg

DRUGS (2)
  1. TASIGNA [Suspect]
     Active Substance: NILOTINIB
     Indication: CHRONIC MYELOID LEUKAEMIA
     Dosage: 400 MG, QD (200 MG 2 EVERY 12 HOURS)
     Route: 048
     Dates: start: 20100611
  2. HYDROXYUREA. [Suspect]
     Active Substance: HYDROXYUREA
     Indication: PRODUCT USED FOR UNKNOWN INDICATION
     Dosage: 6 DF, QD(3 IN THE MORNING AND 3 AT NIGHT)
     Route: 065

REACTIONS (16)
  - Chills [Unknown]
  - Decreased appetite [Unknown]
  - Joint injury [Unknown]
  - Skin discolouration [Unknown]
  - Haematoma [Unknown]
  - Inflammation [Unknown]
  - Dizziness [Unknown]
  - Road traffic accident [Unknown]
  - Vomiting [Unknown]
  - Chronic myeloid leukaemia [Unknown]
  - Infection [Unknown]
  - General physical health deterioration [Unknown]
  - Arthralgia [Unknown]
  - Peripheral swelling [Unknown]
  - Spinal pain [Unknown]
  - Diarrhoea [Unknown]
